FAERS Safety Report 12721171 (Version 1)
Quarter: 2016Q3

REPORT INFORMATION
  Report Type: Report from Study
  Country: BR (occurrence: BR)
  Receive Date: 20160907
  Receipt Date: 20160907
  Transmission Date: 20161109
  Serious: Yes (Hospitalization)
  Sender: FDA-Public Use
  Company Number: PHHY2016BR122726

PATIENT
  Sex: Male
  Weight: 60 kg

DRUGS (2)
  1. EXJADE [Suspect]
     Active Substance: DEFERASIROX
     Indication: ANAEMIA
     Dosage: 2 DF (1000 MG) (15 MG/KG), QD
     Route: 065
  2. EXJADE [Suspect]
     Active Substance: DEFERASIROX
     Dosage: 1 DF (500 MG) (10 MG/KG), QD
     Route: 065

REACTIONS (2)
  - Blood test abnormal [Unknown]
  - Malaise [Unknown]
